FAERS Safety Report 9903237 (Version 2)
Quarter: 2014Q1

REPORT INFORMATION
  Report Type: Spontaneous
  Country: US (occurrence: US)
  Receive Date: 20140217
  Receipt Date: 20140217
  Transmission Date: 20141002
  Serious: No
  Sender: FDA-Public Use
  Company Number: US-ASTRAZENECA-2001UW12003

PATIENT
  Age: 62 Year
  Sex: Male
  Weight: 83.9 kg

DRUGS (4)
  1. TENORMIN [Suspect]
     Indication: HYPERTENSION
     Route: 048
  2. CRESTOR [Suspect]
     Indication: BLOOD CHOLESTEROL DECREASED
     Route: 048
     Dates: start: 2010, end: 201305
  3. SIMVASTATIN [Concomitant]
     Dates: start: 201309
  4. STRONOCACTONE [Concomitant]

REACTIONS (5)
  - Blood cholesterol abnormal [Unknown]
  - Blood triglycerides abnormal [Unknown]
  - Laboratory test abnormal [Unknown]
  - Intentional drug misuse [Unknown]
  - Drug ineffective [Unknown]
